FAERS Safety Report 4784500-0 (Version None)
Quarter: 2005Q3

REPORT INFORMATION
  Report Type: 
  Country: None (occurrence: None)
  Receive Date: 20050930
  Receipt Date: 20050928
  Transmission Date: 20060218
  Serious: Yes (Hospitalization)
  Sender: FDA-Public Use
  Company Number: US-GLAXOSMITHKLINE-A0576249A

PATIENT
  Age: 57 Year
  Sex: Female

DRUGS (3)
  1. AVANDIA [Suspect]
     Route: 048
  2. LISINOPRIL [Concomitant]
  3. METFORMIN [Concomitant]

REACTIONS (7)
  - ATRIAL FIBRILLATION [None]
  - CHILLS [None]
  - CHROMATURIA [None]
  - DRUG ADMINISTRATION ERROR [None]
  - DYSPNOEA [None]
  - HEART RATE INCREASED [None]
  - PYREXIA [None]
